FAERS Safety Report 9019640 (Version 1)
Quarter: 2013Q1

REPORT INFORMATION
  Report Type: Spontaneous
  Country: US (occurrence: US)
  Receive Date: 20130118
  Receipt Date: 20130118
  Transmission Date: 20140127
  Serious: No
  Sender: FDA-Public Use
  Company Number: US-BRISTOL-MYERS SQUIBB COMPANY-16584294

PATIENT
  Age: 7 Year
  Sex: Female

DRUGS (2)
  1. ABILIFY ORAL SOLUTION [Suspect]
     Indication: ABNORMAL BEHAVIOUR
     Route: 048
     Dates: start: 201107
  2. ABILIFY ORAL SOLUTION [Suspect]
     Indication: AGITATION
     Route: 048
     Dates: start: 201107

REACTIONS (1)
  - Precocious puberty [Unknown]
